FAERS Safety Report 8349179-X (Version None)
Quarter: 2012Q2

REPORT INFORMATION
  Report Type: 
  Country: None (occurrence: None)
  Receive Date: 20120510
  Receipt Date: 20120502
  Transmission Date: 20120825
  Serious: Yes (Hospitalization, Other)
  Sender: FDA-Public Use
  Company Number: DE-UCBSA-055485

PATIENT
  Age: 31 Year
  Sex: Female
  Weight: 55 kg

DRUGS (4)
  1. RISPERDAL [Concomitant]
     Dosage: 2 MG
  2. KEPPRA [Suspect]
     Dosage: 500 MG, 6 TABLETS, TOTAL AMOUNT: 3000 MG
     Dates: start: 20120416
  3. VALPROIC ACID RETARD [Concomitant]
     Dosage: 500 MG
  4. MELPERONE [Concomitant]
     Dosage: 25 MG

REACTIONS (4)
  - GAIT DISTURBANCE [None]
  - TOXICITY TO VARIOUS AGENTS [None]
  - SUICIDE ATTEMPT [None]
  - DIZZINESS [None]
